FAERS Safety Report 25380653 (Version 3)
Quarter: 2025Q4

REPORT INFORMATION
  Report Type: Spontaneous
  Country: EU (occurrence: EU)
  Receive Date: 20250530
  Receipt Date: 20251103
  Transmission Date: 20260118
  Serious: Yes (Other)
  Sender: TRAVERE THERAPEUTICS
  Company Number: EU-BEH-2025207000

PATIENT
  Age: 54 Year
  Sex: Male

DRUGS (6)
  1. FILSPARI [Suspect]
     Active Substance: SPARSENTAN
     Indication: Product used for unknown indication
     Dosage: 400 MG
     Route: 048
     Dates: start: 20241127, end: 20250417
  2. LERCANIDIPINE [Concomitant]
     Active Substance: LERCANIDIPINE
  3. DAPAGLIFLOZIN [Concomitant]
     Active Substance: DAPAGLIFLOZIN
  4. INDAPAMIDE [Concomitant]
     Active Substance: INDAPAMIDE
  5. ATORVASTATIN [Concomitant]
     Active Substance: ATORVASTATIN
  6. ALLOPURINOL [Concomitant]
     Active Substance: ALLOPURINOL
     Dosage: UNK MG

REACTIONS (4)
  - Drug-induced liver injury [Recovered/Resolved]
  - Pulmonary embolism [Unknown]
  - Gout [Unknown]
  - Hepatic function abnormal [Recovered/Resolved]

NARRATIVE: CASE EVENT DATE: 20250101
